FAERS Safety Report 20384749 (Version 1)
Quarter: 2022Q1

REPORT INFORMATION
  Report Type: Spontaneous
  Country: US (occurrence: US)
  Receive Date: 20220127
  Receipt Date: 20220127
  Transmission Date: 20220423
  Serious: No
  Sender: FDA-Public Use
  Company Number: US-ALLERGAN-2104215US

PATIENT
  Sex: Female
  Weight: 153.31 kg

DRUGS (1)
  1. BOTOX [Suspect]
     Active Substance: ONABOTULINUMTOXINA
     Indication: Migraine
     Dosage: 155 UNITS, SINGLE
     Dates: start: 20210119, end: 20210119

REACTIONS (3)
  - Periorbital swelling [Recovered/Resolved]
  - Product storage error [Unknown]
  - Pruritus [Recovered/Resolved]
